FAERS Safety Report 16495992 (Version 2)
Quarter: 2019Q3

REPORT INFORMATION
  Report Type: Spontaneous
  Country: US (occurrence: US)
  Receive Date: 20190628
  Receipt Date: 20190903
  Transmission Date: 20191004
  Serious: Yes (Death)
  Sender: FDA-Public Use
  Company Number: US-NOVOPROD-669324

PATIENT
  Age: 41 Year
  Sex: Male
  Weight: 72.6 kg

DRUGS (3)
  1. GLUMETZA [Concomitant]
     Active Substance: METFORMIN HYDROCHLORIDE
     Indication: TYPE 2 DIABETES MELLITUS
     Dosage: UNK
  2. VITAMIN D 2000 [Concomitant]
     Active Substance: VITAMIN D NOS
     Indication: VITAMIN SUPPLEMENTATION
     Dosage: UNK
  3. OZEMPIC [Suspect]
     Active Substance: SEMAGLUTIDE
     Indication: TYPE 2 DIABETES MELLITUS
     Dosage: 0.5 MG, QW
     Route: 058
     Dates: start: 2018

REACTIONS (3)
  - Gastrointestinal disorder [Unknown]
  - Myocardial infarction [Fatal]
  - Abdominal pain [Unknown]

NARRATIVE: CASE EVENT DATE: 2018
